FAERS Safety Report 10154207 (Version 2)
Quarter: 2014Q2

REPORT INFORMATION
  Report Type: Spontaneous
  Country: US (occurrence: US)
  Receive Date: 20140506
  Receipt Date: 20140523
  Transmission Date: 20141212
  Serious: No
  Sender: FDA-Public Use
  Company Number: US-PFIZER INC-2014119314

PATIENT
  Age: 65 Year
  Sex: Female
  Weight: 81.6 kg

DRUGS (24)
  1. PREMARIN [Suspect]
     Indication: OESTROGEN REPLACEMENT THERAPY
     Dosage: UNK, 0.625 MG, 3X/WEEK
     Route: 067
     Dates: start: 20090728
  2. FLUTICASONE [Concomitant]
     Dosage: 50 UG, 1X/DAY
     Route: 045
  3. RANITIDINE HYDROCHLORIDE [Concomitant]
     Dosage: 150 MG, 2X/DAY
  4. OMEPRAZOLE [Concomitant]
     Dosage: 40 MG, 1X/DAY
  5. GEMFIBROZIL [Concomitant]
     Dosage: 600 MG, 2X/DAY
  6. PRAVASTATIN SODIUM [Concomitant]
     Dosage: 10 MG, 1X/DAY (AT BEDTIME)
  7. ESTROPIPATE [Concomitant]
     Dosage: 0.75 MG, 1X/DAY
  8. AMLODIPINE [Concomitant]
     Dosage: 5 MG, 1X/DAY
  9. NORTRIPTYLINE [Concomitant]
     Dosage: 50 MG, 1X/DAY (AT BEDTIME)
  10. NITROFURANTOIN [Concomitant]
     Dosage: 100 MG, 1X/DAY
  11. CYCLOBENZAPRINE HYDROCHLORIDE [Concomitant]
     Dosage: 10 MG, 1X/DAY (ONCE AT BEDTIME)
  12. VITAMIN D3 [Concomitant]
     Dosage: 5000 IU, 2X/DAY
  13. ONDANSETRON [Concomitant]
     Indication: NAUSEA
     Dosage: 4 MG, AS NEEDED (EVERY 8 HOURS AS NEEDED)
  14. HYOMAX [Concomitant]
     Dosage: 0.125 MG, 1 TO 2 TAB(S) 30 MINUTES BEFORE MEALS
  15. VICODIN [Concomitant]
     Dosage: 300MG/5 MG, 4X/DAY(EVERY 6 HOURS)
  16. WESTCORT [Concomitant]
     Dosage: 0.2% CREAM 1 APP, 2X/DAY
  17. VITAMIN B COMPLEX [Concomitant]
     Dosage: 1 DF, 1X/DAY
  18. M-CAPS [Concomitant]
     Dosage: 200 MG, 1X/DAY
  19. ASPIRIN ^BAYER^ [Concomitant]
     Dosage: 325 MG, 1X/DAY
  20. FISH OIL [Concomitant]
     Dosage: 1000 MG, 1X/DAY
  21. TRAMADOL HYDROCHLORIDE [Concomitant]
     Indication: PAIN
     Dosage: 50 MG, AS NEEDED (EVERY 6 HOURS)
  22. NAPROSYN [Concomitant]
     Dosage: 500 MG, AS NEEDED (TWICE A DAY WITH FOOD AS NEEDED)
  23. LINZESS [Concomitant]
     Dosage: 290 1 TAB DAILY (QD)
  24. GAVILYTE C [Concomitant]
     Dosage: 240 ML, EVERY 15 MINUTES

REACTIONS (3)
  - Visual impairment [Unknown]
  - Fall [Unknown]
  - Pruritus [Unknown]
